FAERS Safety Report 6974277-2 (Version None)
Quarter: 2010Q3

REPORT INFORMATION
  Report Type: 
  Country: None (occurrence: None)
  Receive Date: 20100909
  Receipt Date: 20100723
  Transmission Date: 20110219
  Serious: Yes (Hospitalization)
  Sender: FDA-Public Use
  Company Number: PHHO2010FR11306

PATIENT
  Age: 17 Year
  Sex: Female

DRUGS (3)
  1. TEGRETOL [Suspect]
     Dosage: 3 TABLETS A DAY
     Route: 048
     Dates: start: 20010301
  2. SOMATROPIN [Suspect]
     Indication: SMALL FOR DATES BABY
     Dosage: 11.9 MG, QD
     Dates: start: 19961202
  3. TOPIRAMATE [Concomitant]

REACTIONS (3)
  - CYTOLYTIC HEPATITIS [None]
  - FEBRILE BONE MARROW APLASIA [None]
  - RENAL FAILURE [None]
